FAERS Safety Report 21261208 (Version 1)
Quarter: 2022Q3

REPORT INFORMATION
  Report Type: Spontaneous
  Country: US (occurrence: US)
  Receive Date: 20220826
  Receipt Date: 20220826
  Transmission Date: 20221026
  Serious: Yes (Hospitalization, Other)
  Sender: FDA-Public Use
  Company Number: US-009507513-2208USA009126

PATIENT
  Sex: Female
  Weight: 181 kg

DRUGS (10)
  1. JANUVIA [Suspect]
     Active Substance: SITAGLIPTIN PHOSPHATE
     Route: 048
  2. KORLYM [Suspect]
     Active Substance: MIFEPRISTONE
     Indication: Cushing^s syndrome
     Dosage: 300 MILLIGRAM, QD
     Route: 048
     Dates: start: 20220603
  3. KORLYM [Suspect]
     Active Substance: MIFEPRISTONE
     Dosage: 600 MILLIGRAM, QD
     Route: 048
     Dates: start: 202206
  4. KORLYM [Suspect]
     Active Substance: MIFEPRISTONE
     Dosage: 900 MILLIGRAM, QD
     Route: 048
     Dates: start: 20220630
  5. KORLYM [Suspect]
     Active Substance: MIFEPRISTONE
     Dosage: 600 MILLIGRAM, QD
     Route: 048
     Dates: start: 2022
  6. OZEMPIC [Concomitant]
     Active Substance: SEMAGLUTIDE
     Dosage: 1 MILLIGRAM
  7. OMEPRAZOLE [Concomitant]
     Active Substance: OMEPRAZOLE
  8. TRAZODONE [Concomitant]
     Active Substance: TRAZODONE HYDROCHLORIDE
  9. FERROUS SULFATE [Concomitant]
     Active Substance: FERROUS SULFATE
  10. MIRAPEX [Concomitant]
     Active Substance: PRAMIPEXOLE DIHYDROCHLORIDE

REACTIONS (25)
  - Dehydration [Recovering/Resolving]
  - Pyelonephritis [Recovering/Resolving]
  - Tachycardia [Unknown]
  - Dyspnoea [Not Recovered/Not Resolved]
  - Urine ketone body [Not Recovered/Not Resolved]
  - Nitrite urine [Unknown]
  - White blood cell count increased [Unknown]
  - Ventricular extrasystoles [Unknown]
  - Electrocardiogram T wave abnormal [Unknown]
  - Weight decreased [Not Recovered/Not Resolved]
  - Blood glucose increased [Unknown]
  - Restless legs syndrome [Unknown]
  - Proteinuria [Unknown]
  - Palpitations [Unknown]
  - Gait disturbance [Unknown]
  - Feeling cold [Unknown]
  - Chest discomfort [Unknown]
  - Dizziness [Unknown]
  - Decreased appetite [Unknown]
  - Fatigue [Unknown]
  - Muscular weakness [Unknown]
  - Somnolence [Unknown]
  - Myalgia [Unknown]
  - Headache [Recovered/Resolved]
  - Blood glucose decreased [Unknown]

NARRATIVE: CASE EVENT DATE: 20220101
